FAERS Safety Report 8592964-X (Version None)
Quarter: 2012Q3

REPORT INFORMATION
  Report Type: 
  Country: None (occurrence: None)
  Receive Date: 20120814
  Receipt Date: 20120808
  Transmission Date: 20120928
  Serious: Yes (Hospitalization)
  Sender: FDA-Public Use
  Company Number: US-VERTEX PHARMACEUTICALS INC.-AE-2012-011805

PATIENT
  Age: 63 Year
  Weight: 110.78 kg

DRUGS (3)
  1. INCIVEK [Suspect]
     Indication: HEPATITIS C
     Route: 048
     Dates: start: 20120213
  2. PEGASYS [Concomitant]
     Indication: HEPATITIS C
     Route: 058
     Dates: start: 20120213
  3. RIBAVIRIN [Concomitant]
     Indication: HEPATITIS C
     Route: 048
     Dates: start: 20120213

REACTIONS (10)
  - RENAL FAILURE ACUTE [None]
  - RHABDOMYOLYSIS [None]
  - ISCHAEMIC HEPATITIS [None]
  - SEPTIC SHOCK [None]
  - GENERALISED OEDEMA [None]
  - URINARY TRACT INFECTION [None]
  - ACUTE RESPIRATORY DISTRESS SYNDROME [None]
  - THROMBOCYTOPENIA [None]
  - LOSS OF CONSCIOUSNESS [None]
  - PNEUMONIA [None]
